FAERS Safety Report 17124446 (Version 1)
Quarter: 2019Q4

REPORT INFORMATION
  Report Type: Spontaneous
  Country: US (occurrence: US)
  Receive Date: 20191206
  Receipt Date: 20191206
  Transmission Date: 20200122
  Serious: No
  Sender: FDA-Public Use
  Company Number: US-NOVOPROD-667614

PATIENT
  Age: 49 Year
  Sex: Male

DRUGS (1)
  1. NOVOLIN 70/30 [Suspect]
     Active Substance: INSULIN HUMAN
     Indication: LATENT AUTOIMMUNE DIABETES IN ADULTS
     Dosage: 30 IN AM 25 IN PM
     Route: 058
     Dates: start: 2004

REACTIONS (2)
  - Feeling abnormal [Recovered/Resolved]
  - Dizziness [Recovered/Resolved]

NARRATIVE: CASE EVENT DATE: 201905
